FAERS Safety Report 9213847 (Version 2)
Quarter: 2013Q2

REPORT INFORMATION
  Report Type: Spontaneous
  Country: US (occurrence: US)
  Receive Date: 20130405
  Receipt Date: 20130423
  Transmission Date: 20140414
  Serious: Yes (Death, Other)
  Sender: FDA-Public Use
  Company Number: US-BRISTOL-MYERS SQUIBB COMPANY-18719674

PATIENT
  Age: 50 Year
  Sex: Male

DRUGS (11)
  1. ELIQUIS [Suspect]
     Indication: ATRIAL FIBRILLATION
     Dates: start: 20130222
  2. AMIODARONE [Concomitant]
  3. POTASSIUM [Concomitant]
  4. CLONIDINE [Concomitant]
  5. AMITIZA [Concomitant]
  6. NORVASC [Concomitant]
  7. LISINOPRIL [Concomitant]
  8. COREG [Concomitant]
  9. BUMEX [Concomitant]
  10. ALDACTONE [Concomitant]
  11. ZAROXOLYN [Concomitant]

REACTIONS (3)
  - Death [Fatal]
  - Treatment noncompliance [Unknown]
  - Hypokalaemia [Unknown]
